FAERS Safety Report 6481005-6 (Version None)
Quarter: 2009Q4

REPORT INFORMATION
  Report Type: 
  Country: None (occurrence: None)
  Receive Date: 20091208
  Receipt Date: 20091130
  Transmission Date: 20100525
  Serious: Yes (Other)
  Sender: FDA-Public Use
  Company Number: PHHY2009JP53313

PATIENT
  Age: 4 Year
  Sex: Male

DRUGS (5)
  1. CYCLOSPORINE [Suspect]
     Indication: NEPHROTIC SYNDROME
     Route: 065
  2. CYCLOSPORINE [Suspect]
     Route: 065
  3. PREDONINE [Concomitant]
     Indication: NEPHROTIC SYNDROME
  4. METHYLPREDNISOLONE [Concomitant]
     Indication: NEPHROTIC SYNDROME
  5. MIZORIBINE [Concomitant]
     Indication: NEPHROTIC SYNDROME

REACTIONS (2)
  - DISEASE RECURRENCE [None]
  - FOCAL SEGMENTAL GLOMERULOSCLEROSIS [None]
